FAERS Safety Report 5429700-1 (Version None)
Quarter: 2007Q3

REPORT INFORMATION
  Report Type: 
  Country: None (occurrence: None)
  Receive Date: 20070829
  Receipt Date: 20070820
  Transmission Date: 20080115
  Serious: Yes (Hospitalization)
  Sender: FDA-Public Use
  Company Number: US-AMGEN-STX238123

PATIENT
  Sex: Female
  Weight: 97.2 kg

DRUGS (5)
  1. ENBREL [Suspect]
     Indication: PSORIATIC ARTHROPATHY
     Route: 058
     Dates: start: 20021203
  2. INDOCIN [Concomitant]
     Dates: start: 20000101
  3. PREMARIN [Concomitant]
     Dates: end: 20050301
  4. MICROZIDE [Concomitant]
     Dates: end: 20000901
  5. ATIVAN [Concomitant]
     Dates: end: 20060501

REACTIONS (1)
  - OSTEOARTHRITIS [None]
